FAERS Safety Report 12710665 (Version 1)
Quarter: 2016Q3

REPORT INFORMATION
  Report Type: Spontaneous
  Country: US (occurrence: US)
  Receive Date: 20160901
  Receipt Date: 20160901
  Transmission Date: 20161109
  Serious: No
  Sender: FDA-Public Use
  Company Number: None

PATIENT
  Age: 67 Year
  Sex: Female

DRUGS (1)
  1. OCALIVA [Suspect]
     Active Substance: OBETICHOLIC ACID
     Indication: BILIARY CIRRHOSIS PRIMARY
     Route: 048
     Dates: start: 20160803

REACTIONS (9)
  - Abdominal distension [None]
  - Dyspnoea [None]
  - Nausea [None]
  - Pruritus [None]
  - Sleep disorder [None]
  - Headache [None]
  - Tremor [None]
  - Constipation [None]
  - Hyperhidrosis [None]

NARRATIVE: CASE EVENT DATE: 201608
